FAERS Safety Report 14220428 (Version 1)
Quarter: 2017Q4

REPORT INFORMATION
  Report Type: Spontaneous
  Country: US (occurrence: US)
  Receive Date: 20171124
  Receipt Date: 20171124
  Transmission Date: 20180321
  Serious: Yes (Death, Other)
  Sender: FDA-Public Use
  Company Number: US-GLAXOSMITHKLINE-US2017GSK178784

PATIENT
  Age: 57 Year
  Sex: Male

DRUGS (1)
  1. BUPROPION. [Suspect]
     Active Substance: BUPROPION
     Indication: PRODUCT USED FOR UNKNOWN INDICATION

REACTIONS (9)
  - Coma [Unknown]
  - Arrhythmia [Unknown]
  - Depressed level of consciousness [Unknown]
  - Acute kidney injury [Unknown]
  - Seizure [Unknown]
  - Exposure to toxic agent [Fatal]
  - Pneumonia aspiration [Unknown]
  - Acute respiratory distress syndrome [Unknown]
  - Acute lung injury [Unknown]
